FAERS Safety Report 6366798-0 (Version None)
Quarter: 2009Q3

REPORT INFORMATION
  Report Type: 
  Country: None (occurrence: None)
  Receive Date: 20090921
  Receipt Date: 20090911
  Transmission Date: 20100115
  Serious: Yes (Hospitalization)
  Sender: FDA-Public Use
  Company Number: US-WATSON-2009-06059

PATIENT
  Age: 77 Year
  Sex: Male

DRUGS (1)
  1. TRELSTAR LA [Suspect]
     Indication: PROSTATE CANCER
     Dosage: UNK
     Route: 065

REACTIONS (2)
  - PANCREATIC PHLEGMON [None]
  - PANCREATITIS [None]
